FAERS Safety Report 12523708 (Version 1)
Quarter: 2016Q3

REPORT INFORMATION
  Report Type: Spontaneous
  Country: US (occurrence: US)
  Receive Date: 20160704
  Receipt Date: 20160704
  Transmission Date: 20161109
  Serious: Yes (Other)
  Sender: FDA-Public Use
  Company Number: US-AMGEN-USASP2016074571

PATIENT
  Age: 85 Year
  Sex: Male
  Weight: 59.32 kg

DRUGS (1)
  1. PROLIA [Suspect]
     Active Substance: DENOSUMAB
     Indication: OSTEOPOROSIS
     Dosage: 60 MG, Q6MO
     Route: 065
     Dates: start: 2015

REACTIONS (3)
  - Tooth disorder [Unknown]
  - Aortic valve disease [Unknown]
  - Cardiac operation [Unknown]
